FAERS Safety Report 7466232-3 (Version None)
Quarter: 2011Q2

REPORT INFORMATION
  Report Type: 
  Country: None (occurrence: None)
  Receive Date: 20110509
  Receipt Date: 20110427
  Transmission Date: 20111010
  Serious: Yes (Hospitalization)
  Sender: FDA-Public Use
  Company Number: US-WATSON-2011-06187

PATIENT
  Age: 2 Year
  Sex: Male

DRUGS (2)
  1. ISOFLURANE [Suspect]
     Indication: ANAESTHESIA
     Route: 055
  2. ROCURONIUM BROMIDE [Suspect]
     Indication: ANAESTHESIA

REACTIONS (3)
  - RENAL FAILURE [None]
  - COMPARTMENT SYNDROME [None]
  - KOUNIS SYNDROME [None]
